FAERS Safety Report 15386159 (Version 1)
Quarter: 2018Q3

REPORT INFORMATION
  Report Type: Spontaneous
  Country: SG (occurrence: SG)
  Receive Date: 20180914
  Receipt Date: 20180914
  Transmission Date: 20181010
  Serious: Yes (Other)
  Sender: FDA-Public Use
  Company Number: SG-SAKK-2018SA254103AA

PATIENT
  Age: 70 Year
  Sex: Female

DRUGS (1)
  1. LEFLUNOMIDE. [Suspect]
     Active Substance: LEFLUNOMIDE
     Dosage: UNK UNK, UNK

REACTIONS (4)
  - Haematuria [Recovered/Resolved]
  - Thrombocytopenia [Recovering/Resolving]
  - Neovascularisation [Not Recovered/Not Resolved]
  - Haemorrhage [Unknown]
